FAERS Safety Report 5005318-X (Version None)
Quarter: 2006Q2

REPORT INFORMATION
  Report Type: 
  Country: None (occurrence: None)
  Receive Date: 20060515
  Receipt Date: 20060508
  Transmission Date: 20061013
  Serious: Yes (Hospitalization)
  Sender: FDA-Public Use
  Company Number: 2006BI005463

PATIENT
  Age: 57 Year
  Sex: Female

DRUGS (13)
  1. AVONEX [Suspect]
     Indication: MULTIPLE SCLEROSIS
     Dosage: 30 UG QW IM
     Route: 030
     Dates: start: 20020201
  2. AVONEX [Suspect]
     Indication: MULTIPLE SCLEROSIS
     Dosage: 30 UG QW IM
     Route: 030
  3. MIRAPEX [Concomitant]
  4. SINEMET [Concomitant]
  5. PROTONIX [Concomitant]
  6. ZOFRAN [Concomitant]
  7. NEURONTIN [Concomitant]
  8. SYNTHROID [Concomitant]
  9. CLARITIN [Concomitant]
  10. ISOPTIN SR [Concomitant]
  11. RELAFEN [Concomitant]
  12. IRON SUPPLEMENT [Concomitant]
  13. DETROL LA [Concomitant]

REACTIONS (1)
  - PYELONEPHRITIS [None]
